FAERS Safety Report 7386108-X (Version None)
Quarter: 2011Q1

REPORT INFORMATION
  Report Type: 
  Country: None (occurrence: None)
  Receive Date: 20110331
  Receipt Date: 20110317
  Transmission Date: 20110831
  Serious: Yes (Hospitalization)
  Sender: FDA-Public Use
  Company Number: US-SANOFI-AVENTIS-2010SA034682

PATIENT
  Age: 29 Year
  Sex: Female
  Weight: 62.59 kg

DRUGS (6)
  1. LOVENOX [Suspect]
     Route: 065
     Dates: start: 20100530, end: 20101112
  2. HEPARIN SODIUM [Concomitant]
     Route: 065
     Dates: start: 20101112, end: 20101119
  3. PROMETHAZINE [Concomitant]
     Dates: start: 20100501, end: 20100530
  4. LOVENOX [Suspect]
     Route: 065
     Dates: start: 20101119
  5. ONDANSETRON [Concomitant]
     Dates: start: 20100501, end: 20100530
  6. PRENATAL VITAMINS [Concomitant]
     Dates: start: 20100101

REACTIONS (3)
  - DRUG EXPOSURE DURING PREGNANCY [None]
  - VOMITING [None]
  - KETOSIS [None]
